APPROVED DRUG PRODUCT: NIACIN
Active Ingredient: NIACIN
Strength: 750MG
Dosage Form/Route: TABLET, EXTENDED RELEASE;ORAL
Application: A203285 | Product #002
Applicant: ZYDUS PHARMACEUTICALS USA INC
Approved: Apr 28, 2025 | RLD: No | RS: No | Type: DISCN